FAERS Safety Report 8963005 (Version 2)
Quarter: 2013Q2

REPORT INFORMATION
  Report Type: Report from Study
  Country: CA (occurrence: CA)
  Receive Date: 20121214
  Receipt Date: 20130625
  Transmission Date: 20140414
  Serious: Yes (Hospitalization)
  Sender: FDA-Public Use
  Company Number: CA-JNJFOC-20121202925

PATIENT
  Age: 72 Year
  Sex: Female
  Weight: 130 kg

DRUGS (1)
  1. REMICADE [Suspect]
     Indication: CROHN^S DISEASE
     Dosage: FOR 52 WEEKS
     Route: 042
     Dates: start: 201010

REACTIONS (3)
  - Intestinal mass [Unknown]
  - Intestinal obstruction [Recovering/Resolving]
  - Postoperative wound infection [Recovering/Resolving]
